FAERS Safety Report 6767273-1 (Version None)
Quarter: 2010Q2

REPORT INFORMATION
  Report Type: 
  Country: None (occurrence: None)
  Receive Date: 20100614
  Receipt Date: 20100604
  Transmission Date: 20101027
  Serious: Yes (Hospitalization)
  Sender: FDA-Public Use
  Company Number: US-ASTRAZENECA-2010SE25875

PATIENT
  Sex: Female

DRUGS (1)
  1. MERREM [Suspect]
     Indication: PSEUDOMONAS INFECTION
     Route: 042

REACTIONS (1)
  - HOSPITALISATION [None]
